FAERS Safety Report 24675805 (Version 1)
Quarter: 2024Q4

REPORT INFORMATION
  Report Type: Spontaneous
  Country: KR (occurrence: KR)
  Receive Date: 20241128
  Receipt Date: 20241128
  Transmission Date: 20250114
  Serious: Yes (Other)
  Sender: BRISTOL-MYERS SQUIBB COMPANY
  Company Number: KR-BRISTOL-MYERS SQUIBB COMPANY-2024-181623

PATIENT
  Age: 61 Year
  Sex: Female
  Weight: 63.7 kg

DRUGS (13)
  1. BARACLUDE [Suspect]
     Active Substance: ENTECAVIR
     Indication: Hepatitis B
     Route: 048
     Dates: start: 20210902
  2. TRASTUZUMAB [Suspect]
     Active Substance: TRASTUZUMAB
     Indication: HER2 positive breast cancer
     Route: 042
     Dates: start: 20210702, end: 20210812
  3. THIOCTIC ACID TROMETHAMINE [Concomitant]
     Active Substance: THIOCTIC ACID TROMETHAMINE
     Indication: Diabetes mellitus
     Route: 048
     Dates: start: 20210902
  4. SITAGLIPTIN PHOSPHATE [Concomitant]
     Active Substance: SITAGLIPTIN PHOSPHATE
     Indication: Diabetes mellitus
     Route: 048
     Dates: start: 20210902
  5. LOSARTAN POTASSIUM [Concomitant]
     Active Substance: LOSARTAN POTASSIUM
     Indication: Hypertension
     Route: 048
     Dates: start: 20210902
  6. HYDROCHLOROTHIAZIDE [Concomitant]
     Active Substance: HYDROCHLOROTHIAZIDE
     Indication: Hypertension
     Route: 048
     Dates: start: 20210902
  7. SODIUM ALGINATE [Concomitant]
     Active Substance: SODIUM ALGINATE
     Indication: Gastritis prophylaxis
     Route: 048
     Dates: start: 20210902
  8. LAFUTIDINE [Concomitant]
     Active Substance: LAFUTIDINE
     Indication: Gastritis prophylaxis
     Route: 048
     Dates: start: 20210820
  9. POTASSIUM CHLORIDE [Concomitant]
     Active Substance: POTASSIUM CHLORIDE
     Indication: Hypokalaemia
     Route: 048
     Dates: start: 20210901, end: 20210903
  10. LACTOBACILLUS CASEI;LACTOBACILLUS RHAMNOSUS [Concomitant]
     Indication: Probiotic therapy
     Route: 048
     Dates: start: 20210802
  11. METOCLOPRAMIDE [Concomitant]
     Active Substance: METOCLOPRAMIDE
     Indication: Nausea
     Route: 048
     Dates: start: 20210719, end: 20210720
  12. LORAZEPAM [Concomitant]
     Active Substance: LORAZEPAM
     Indication: Anxiety
     Route: 048
     Dates: start: 20210702
  13. LORAZEPAM [Concomitant]
     Active Substance: LORAZEPAM
     Indication: Prophylaxis

REACTIONS (1)
  - Medical device site infection [Recovered/Resolved]

NARRATIVE: CASE EVENT DATE: 20210902
